FAERS Safety Report 6334681-2 (Version None)
Quarter: 2009Q3

REPORT INFORMATION
  Report Type: 
  Country: None (occurrence: None)
  Receive Date: 20090831
  Receipt Date: 20090817
  Transmission Date: 20100115
  Serious: No
  Sender: FDA-Public Use
  Company Number: US-BAYER-200930247NA

PATIENT

DRUGS (1)
  1. CIPRO [Suspect]
     Indication: PROSTATITIS
     Route: 048
     Dates: start: 20090601

REACTIONS (1)
  - TENDON PAIN [None]
